FAERS Safety Report 9657757 (Version 2)
Quarter: 2013Q4

REPORT INFORMATION
  Report Type: Report from Study
  Country: US (occurrence: US)
  Receive Date: 20131030
  Receipt Date: 20131030
  Transmission Date: 20140711
  Serious: Yes (Hospitalization, Other)
  Sender: FDA-Public Use
  Company Number: US-PFIZER INC-2013247121

PATIENT
  Age: 53 Year
  Sex: Female

DRUGS (1)
  1. AXITINIB [Suspect]
     Indication: ADENOID CYSTIC CARCINOMA
     Dosage: TWICE DAILY
     Route: 048
     Dates: start: 20130227, end: 20130826

REACTIONS (11)
  - Ulcerative keratitis [Recovered/Resolved]
  - Confusional state [Recovered/Resolved]
  - Pyrexia [Recovered/Resolved]
  - Anaemia [Recovered/Resolved]
  - Urinary tract infection [Recovered/Resolved]
  - Blood bilirubin increased [Recovered/Resolved]
  - Hypocalcaemia [Recovered/Resolved]
  - Hypokalaemia [Recovered/Resolved]
  - Hyponatraemia [Recovered/Resolved]
  - Central nervous system abscess [Recovered/Resolved]
  - Hypoalbuminaemia [Recovered/Resolved]
